FAERS Safety Report 7665835-0 (Version None)
Quarter: 2011Q3

REPORT INFORMATION
  Report Type: 
  Country: None (occurrence: None)
  Receive Date: 20110806
  Receipt Date: 20110421
  Transmission Date: 20111222
  Serious: No
  Sender: FDA-Public Use
  Company Number: US-ABBOTT-11P-163-0720786-00

PATIENT
  Sex: Male
  Weight: 98.972 kg

DRUGS (4)
  1. NIASPAN [Suspect]
     Indication: HIGH DENSITY LIPOPROTEIN DECREASED
     Dates: start: 20110413
  2. NIASPAN [Suspect]
     Dates: start: 20110324, end: 20110413
  3. TETRACYCLINE [Concomitant]
     Indication: PRODUCT USED FOR UNKNOWN INDICATION
  4. GLUCOSAMINE + CHONDROITIN [Concomitant]
     Indication: PRODUCT USED FOR UNKNOWN INDICATION

REACTIONS (4)
  - HYPERAESTHESIA [None]
  - PARAESTHESIA [None]
  - FLUSHING [None]
  - FEELING HOT [None]
